FAERS Safety Report 12153919 (Version 3)
Quarter: 2016Q2

REPORT INFORMATION
  Report Type: Spontaneous
  Country: US (occurrence: US)
  Receive Date: 20160307
  Receipt Date: 20160607
  Transmission Date: 20160815
  Serious: Yes (Hospitalization)
  Sender: FDA-Public Use
  Company Number: US-HORIZON-RAV-0046-2016

PATIENT
  Age: 3 Year
  Sex: Female

DRUGS (4)
  1. PROPHREE [Concomitant]
  2. ANAMIX [Concomitant]
  3. RAVICTI [Suspect]
     Active Substance: GLYCEROL PHENYLBUTYRATE
     Indication: ORNITHINE TRANSCARBAMOYLASE DEFICIENCY
     Dosage: 1 ML TID THEN 2.2 ML TID AND AT THE TIME OF REPORTING 2.4 ML TID
     Route: 048
     Dates: start: 201408
  4. CITRULLINE [Concomitant]
     Active Substance: CITRULLINE
     Dosage: 1 G

REACTIONS (4)
  - Amino acid level increased [Recovered/Resolved]
  - Irritability [Recovered/Resolved]
  - Headache [Recovered/Resolved]
  - Personality change [Recovered/Resolved]

NARRATIVE: CASE EVENT DATE: 2015
